FAERS Safety Report 5743983-X (Version None)
Quarter: 2008Q2

REPORT INFORMATION
  Report Type: 
  Country: None (occurrence: None)
  Receive Date: 20080516
  Receipt Date: 20080507
  Transmission Date: 20081010
  Serious: Yes (Other)
  Sender: FDA-Public Use
  Company Number: 2008JP002174

PATIENT
  Age: 56 Year
  Sex: Male

DRUGS (4)
  1. PROGRAF [Suspect]
     Indication: MYASTHENIA GRAVIS
     Dosage: 3 MG,/D, ORAL
     Route: 048
  2. PREDONINE (PREDINOLONE) [Concomitant]
  3. MYTELASE [Concomitant]
  4. MESTINON [Concomitant]

REACTIONS (1)
  - APLASIA PURE RED CELL [None]
